FAERS Safety Report 14019296 (Version 1)
Quarter: 2017Q3

REPORT INFORMATION
  Report Type: Spontaneous
  Country: US (occurrence: US)
  Receive Date: 20170928
  Receipt Date: 20170928
  Transmission Date: 20171128
  Serious: No
  Sender: FDA-Public Use
  Company Number: US-BION-005474

PATIENT
  Sex: Female

DRUGS (2)
  1. LOPERAMIDE HYDROCHLORIDE. [Suspect]
     Active Substance: LOPERAMIDE HYDROCHLORIDE
     Indication: DIARRHOEA
     Dosage: 1 DF A DAY OR AS NEEDED
     Route: 048
     Dates: end: 20160906
  2. BISMUTH. [Concomitant]
     Active Substance: BISMUTH
     Dates: end: 20160906

REACTIONS (2)
  - Drug effect incomplete [Unknown]
  - Faeces discoloured [Unknown]
